FAERS Safety Report 7731991-9 (Version None)
Quarter: 2011Q3

REPORT INFORMATION
  Report Type: 
  Country: None (occurrence: None)
  Receive Date: 20110906
  Receipt Date: 20110722
  Transmission Date: 20111222
  Serious: No
  Sender: FDA-Public Use
  Company Number: US-AMGEN-USASP2011037476

PATIENT
  Age: 83 Year
  Sex: Female

DRUGS (4)
  1. PROLIA [Suspect]
     Indication: OSTEOARTHRITIS
  2. FENTANYL-100 [Concomitant]
     Dosage: UNK
  3. LORTAB [Concomitant]
     Dosage: UNK MG, UNK
  4. PROLIA [Suspect]
     Indication: OSTEOPOROSIS
     Dosage: 60 MG, UNK
     Dates: start: 20110601

REACTIONS (4)
  - BURNING SENSATION [None]
  - SKIN HAEMORRHAGE [None]
  - DRY SKIN [None]
  - SKIN CHAPPED [None]
